FAERS Safety Report 22118528 (Version 2)
Quarter: 2023Q1

REPORT INFORMATION
  Report Type: Spontaneous
  Country: PK (occurrence: PK)
  Receive Date: 20230321
  Receipt Date: 20230328
  Transmission Date: 20230418
  Serious: Yes (Other)
  Sender: FDA-Public Use
  Company Number: PK-PFIZER INC-202101213367

PATIENT
  Age: 18 Year
  Sex: Female

DRUGS (11)
  1. ENBREL [Suspect]
     Active Substance: ETANERCEPT
     Indication: Juvenile idiopathic arthritis
     Dosage: 50 MILLIGRAM, QWK
     Route: 058
     Dates: start: 20210915
  2. ENBREL [Suspect]
     Active Substance: ETANERCEPT
     Dosage: UNK
     Route: 065
  3. CYTOTREXATE [Concomitant]
     Dosage: 2.5 MILLIGRAM
  4. CYTOTREXATE [Concomitant]
     Dosage: 2.5 MILLIGRAM
  5. CYTOTREXATE [Concomitant]
     Dosage: 2.5 MILLIGRAM
  6. FOLIC ACID [Concomitant]
     Active Substance: FOLIC ACID
     Dosage: 5 MILLIGRAM
  7. DELTACORTRIL [Concomitant]
     Active Substance: PREDNISOLONE
     Dosage: 4 MILLIGRAM, QD
  8. DELTACORTRIL [Concomitant]
     Active Substance: PREDNISOLONE
     Dosage: 5 MILLIGRAM, QD
  9. NAPROXEN [Concomitant]
     Active Substance: NAPROXEN
     Indication: Pain
     Dosage: 250 MILLIGRAM
  10. NAPROXEN [Concomitant]
     Active Substance: NAPROXEN
     Dosage: 250 MILLIGRAM
  11. NAPROXEN [Concomitant]
     Active Substance: NAPROXEN
     Dosage: 250 MILLIGRAM

REACTIONS (8)
  - Glaucoma [Unknown]
  - Arthropathy [Not Recovered/Not Resolved]
  - Musculoskeletal stiffness [Not Recovered/Not Resolved]
  - Disease recurrence [Unknown]
  - Swelling [Unknown]
  - Joint swelling [Unknown]
  - Arthralgia [Unknown]
  - Pain [Unknown]
